FAERS Safety Report 8586625-0 (Version None)
Quarter: 2012Q3

REPORT INFORMATION
  Report Type: 
  Country: None (occurrence: None)
  Receive Date: 20120810
  Receipt Date: 20120807
  Transmission Date: 20120928
  Serious: Yes (Life-Threatening, Hospitalization, Disabling, Other)
  Sender: FDA-Public Use
  Company Number: DE-ABBOTT-06P-062-0353785-00

PATIENT
  Sex: Female

DRUGS (6)
  1. PREDNISOLONE [Concomitant]
     Indication: PRODUCT USED FOR UNKNOWN INDICATION
     Dates: start: 20061101
  2. ETANERCEPT [Concomitant]
     Indication: PRODUCT USED FOR UNKNOWN INDICATION
     Dates: start: 20080301, end: 20100401
  3. METHOTREXATE [Suspect]
     Route: 048
     Dates: start: 20070619
  4. HYDROCORTISONE [Suspect]
     Indication: RHEUMATOID ARTHRITIS
     Route: 042
  5. HUMIRA [Suspect]
     Indication: RHEUMATOID ARTHRITIS
     Dates: start: 20051201, end: 20061201
  6. METHOTREXATE [Suspect]
     Indication: RHEUMATOID ARTHRITIS
     Dates: start: 20051201, end: 20061201

REACTIONS (9)
  - APLASTIC ANAEMIA [None]
  - WHITE BLOOD CELL COUNT INCREASED [None]
  - CELLULITIS [None]
  - EMPYEMA [None]
  - NECROSIS [None]
  - THERMAL BURN [None]
  - SKIN NECROSIS [None]
  - LYMPHANGITIS [None]
  - C-REACTIVE PROTEIN INCREASED [None]
